FAERS Safety Report 15586579 (Version 6)
Quarter: 2019Q4

REPORT INFORMATION
  Report Type: Spontaneous
  Country: CA (occurrence: CA)
  Receive Date: 20181105
  Receipt Date: 20191002
  Transmission Date: 20200122
  Serious: Yes (Hospitalization, Other)
  Sender: FDA-Public Use
  Company Number: CA-PFIZER INC-2018380772

PATIENT
  Age: 82 Year
  Sex: Male

DRUGS (3)
  1. XELJANZ [Suspect]
     Active Substance: TOFACITINIB CITRATE
     Dosage: MAINTENANCE: 5 MG, TWICE DAILY (BID)
     Route: 048
     Dates: start: 201811, end: 201904
  2. FLOMAX [MORNIFLUMATE] [Concomitant]
     Active Substance: MORNIFLUMATE
     Dosage: UNK
  3. XELJANZ [Suspect]
     Active Substance: TOFACITINIB CITRATE
     Indication: COLITIS ULCERATIVE
     Dosage: INDUCTION: 10 MG, TWICE DAY (FOR 8 WEEKS)
     Route: 048
     Dates: start: 20180925, end: 201810

REACTIONS (3)
  - Constipation [Not Recovered/Not Resolved]
  - Localised infection [Not Recovered/Not Resolved]
  - Rectal abscess [Recovering/Resolving]
